FAERS Safety Report 12469825 (Version 2)
Quarter: 2016Q3

REPORT INFORMATION
  Report Type: Spontaneous
  Country: JP (occurrence: JP)
  Receive Date: 20160615
  Receipt Date: 20160702
  Transmission Date: 20161109
  Serious: Yes (Death, Hospitalization, Other)
  Sender: FDA-Public Use
  Company Number: JP-AMGEN-JPNSP2016072619

PATIENT
  Age: 74 Year
  Sex: Male
  Weight: 53 kg

DRUGS (12)
  1. VECTIBIX [Suspect]
     Active Substance: PANITUMUMAB
     Indication: COLON CANCER
     Dosage: UNK
     Route: 041
     Dates: start: 20131119, end: 20141104
  2. CALCIUM LEVOFOLINATE [Concomitant]
     Active Substance: LEVOLEUCOVORIN CALCIUM
     Indication: COLON CANCER
     Dosage: 200 MG, Q2WEEKS
     Route: 041
     Dates: start: 20131119, end: 20141104
  3. 5-FU                               /00098801/ [Concomitant]
     Active Substance: FLUOROURACIL
     Indication: COLON CANCER
     Dosage: 400 MG, Q2WEEKS
     Route: 040
     Dates: start: 20131119, end: 20141104
  4. DEXART [Concomitant]
     Active Substance: DEXAMETHASONE SODIUM PHOSPHATE
     Dosage: 9.9 MG, Q2WEEKS
     Route: 041
     Dates: end: 20141104
  5. FAMOTIDINE. [Concomitant]
     Active Substance: FAMOTIDINE
     Dosage: 20 MG, QD
     Route: 048
     Dates: start: 20131001, end: 20141208
  6. RILMAZAFONE HYDROCHLORIDE [Concomitant]
     Active Substance: RILMAZAFONE HYDROCHLORIDE
     Dosage: 2 MG, QD
     Route: 048
     Dates: start: 20131211, end: 20141208
  7. TALION                             /01587402/ [Concomitant]
     Active Substance: BEPOTASTINE
     Dosage: 10 MG, BID
     Route: 048
     Dates: start: 20140419, end: 20141208
  8. OXALIPLATIN. [Concomitant]
     Active Substance: OXALIPLATIN
     Indication: COLON CANCER
     Dosage: UNK UNK, Q2WEEKS
     Route: 041
     Dates: start: 20131119, end: 20141104
  9. 5-FU                               /00098801/ [Concomitant]
     Active Substance: FLUOROURACIL
     Dosage: 2400 MG, Q2WEEKS
     Route: 041
     Dates: start: 20131119, end: 20141106
  10. MAGLAX [Concomitant]
     Active Substance: MAGNESIUM OXIDE
     Dosage: 330 MG, TID
     Route: 048
     Dates: start: 20131001, end: 20141208
  11. GRANISETRON                        /01178102/ [Concomitant]
     Active Substance: GRANISETRON
     Dosage: 3 MG, Q2WEEKS
     Route: 041
     Dates: end: 20141104
  12. PLAVIX [Concomitant]
     Active Substance: CLOPIDOGREL BISULFATE
     Dosage: 75 MG, QD
     Route: 048
     Dates: start: 20131023, end: 20141208

REACTIONS (3)
  - Road traffic accident [Unknown]
  - Sternal fracture [Unknown]
  - Interstitial lung disease [Fatal]

NARRATIVE: CASE EVENT DATE: 20141110
